FAERS Safety Report 5485171-0 (Version None)
Quarter: 2007Q4

REPORT INFORMATION
  Report Type: 
  Country: None (occurrence: None)
  Receive Date: 20071015
  Receipt Date: 20071010
  Transmission Date: 20080405
  Serious: Yes (Death, Other)
  Sender: FDA-Public Use
  Company Number: PHBS2007JP16939

PATIENT
  Age: 57 Year
  Sex: Male

DRUGS (4)
  1. CICLOSPORIN [Suspect]
     Indication: STEM CELL TRANSPLANT
     Route: 065
  2. ENDOXAN [Concomitant]
     Indication: STEM CELL TRANSPLANT
     Route: 065
  3. METHOTREXATE [Concomitant]
     Indication: STEM CELL TRANSPLANT
  4. PROGRAF [Concomitant]
     Indication: STEM CELL TRANSPLANT

REACTIONS (4)
  - ACUTE GRAFT VERSUS HOST DISEASE [None]
  - ASPERGILLOSIS [None]
  - HEPATIC FUNCTION ABNORMAL [None]
  - MYOCARDITIS MYCOTIC [None]
